FAERS Safety Report 20515741 (Version 1)
Quarter: 2022Q1

REPORT INFORMATION
  Report Type: Spontaneous
  Country: KW (occurrence: KW)
  Receive Date: 20220224
  Receipt Date: 20220224
  Transmission Date: 20220423
  Serious: Yes (Hospitalization)
  Sender: FDA-Public Use
  Company Number: KW-STRIDES ARCOLAB LIMITED-2022SP001781

PATIENT
  Age: 8 Year
  Sex: Male
  Weight: 40 kg

DRUGS (4)
  1. METHYLPHENIDATE [Suspect]
     Active Substance: METHYLPHENIDATE
     Indication: Behaviour disorder
     Dosage: 5 MILLIGRAM, TID (IMMEDIATE RELEASE FORMULATION; THREE TIMES A DAY)
     Route: 065
  2. METHYLPHENIDATE [Suspect]
     Active Substance: METHYLPHENIDATE
     Dosage: 25 MILLIGRAM, PER DAY (INCREASED)
     Route: 065
  3. ARIPIPRAZOLE [Suspect]
     Active Substance: ARIPIPRAZOLE
     Indication: Behaviour disorder
     Dosage: 2 MILLILITER, AT BED TIME, PER DAY (AT NIGHT)
     Route: 065
  4. ARIPIPRAZOLE [Suspect]
     Active Substance: ARIPIPRAZOLE
     Dosage: 5 MILLILITER, UNKNOWN (INCREASED)
     Route: 065

REACTIONS (3)
  - Stereotypy [Recovered/Resolved]
  - Therapy partial responder [Unknown]
  - Off label use [Unknown]
